FAERS Safety Report 5247139-9 (Version None)
Quarter: 2007Q1

REPORT INFORMATION
  Report Type: 
  Country: None (occurrence: None)
  Receive Date: 20070221
  Receipt Date: 20070209
  Transmission Date: 20070707
  Serious: Yes (Hospitalization)
  Sender: FDA-Public Use
  Company Number: 163-21880-07020553

PATIENT
  Age: 69 Year
  Sex: Male

DRUGS (14)
  1. REVLIMID [Suspect]
     Indication: MULTIPLE MYELOMA
     Dosage: 25 MG, 1 IN 1 D, ORAL
     Route: 048
     Dates: start: 20060815, end: 20060904
  2. REVLIMID [Suspect]
     Indication: MULTIPLE MYELOMA
     Dosage: 25 MG, 1 IN 1 D, ORAL
     Route: 048
     Dates: start: 20060914, end: 20061004
  3. REVLIMID [Suspect]
     Indication: MULTIPLE MYELOMA
     Dosage: 25 MG, 1 IN 1 D, ORAL
     Route: 048
     Dates: start: 20061012, end: 20061101
  4. REVLIMID [Suspect]
     Indication: MULTIPLE MYELOMA
     Dosage: 25 MG, 1 IN 1 D, ORAL
     Route: 048
     Dates: start: 20061110, end: 20061113
  5. REVLIMID [Suspect]
     Indication: MULTIPLE MYELOMA
     Dosage: 25 MG, 1 IN 1 D, ORAL
     Route: 048
     Dates: start: 20061207, end: 20061227
  6. LASIX [Concomitant]
  7. MUCINEX [Concomitant]
  8. PROTONIX [Concomitant]
  9. POTASSIUM CHLORIDE [Concomitant]
  10. LYRICA [Concomitant]
  11. METAMUCIL (METAMUCIL PROCTER + GAMBLE) [Concomitant]
  12. OXYCODONE HCL [Concomitant]
  13. METFORMIN HCL [Concomitant]
  14. LACTULOSE [Concomitant]

REACTIONS (3)
  - CONDITION AGGRAVATED [None]
  - ILEUS [None]
  - PRE-EXISTING DISEASE [None]
